FAERS Safety Report 12278595 (Version 4)
Quarter: 2016Q3

REPORT INFORMATION
  Report Type: Spontaneous
  Country: US (occurrence: US)
  Receive Date: 20160418
  Receipt Date: 20160916
  Transmission Date: 20161109
  Serious: Yes (Other)
  Sender: FDA-Public Use
  Company Number: US-PFIZER INC-2016178437

PATIENT
  Age: 54 Year
  Sex: Female
  Weight: 68 kg

DRUGS (24)
  1. PROTONIX [Concomitant]
     Active Substance: PANTOPRAZOLE SODIUM
     Dosage: 40 MG, 1X/DAY (EVERY DAY AT 6:30 AM)
     Dates: start: 20150604
  2. DOCQLACE [Concomitant]
     Active Substance: DOCUSATE SODIUM
     Dosage: UNK UNK, 2X/DAY
     Route: 048
  3. CLONAZEPAM. [Concomitant]
     Active Substance: CLONAZEPAM
     Indication: ANXIETY
     Dosage: 0.5 MG, DAILY (EVERY DAY AT 7:00 AM, 8:00 PM)
     Route: 048
     Dates: start: 2014
  4. TRAMADOL. [Concomitant]
     Active Substance: TRAMADOL
     Indication: PAIN
     Dosage: 50 MG, AS NEEDED
  5. TYLENOL [Concomitant]
     Active Substance: ACETAMINOPHEN
     Indication: PAIN
     Dosage: 325 MG, AS NEEDED
  6. ELIQUIS [Concomitant]
     Active Substance: APIXABAN
     Indication: CEREBROVASCULAR ACCIDENT
     Dosage: 5 MG, 2X/DAY (EVERY DAY AT 7:00 AM, 5:00 PM)
     Route: 048
     Dates: start: 201507
  7. ALLEGRA [Concomitant]
     Active Substance: FEXOFENADINE HYDROCHLORIDE
     Dosage: UNK
  8. ELIQUIS [Concomitant]
     Active Substance: APIXABAN
     Indication: ANTICOAGULANT THERAPY
  9. MIRTAZAPINE. [Concomitant]
     Active Substance: MIRTAZAPINE
     Indication: DEPRESSION
     Dosage: 15 MG, 1X/DAY (EVERY DAY AT 8:00 PM)
  10. SINGULAIR [Concomitant]
     Active Substance: MONTELUKAST SODIUM
     Dosage: 10 MG, 1X/DAY (1AT BEDTIME) (EVERY DAY AT 8:00 PM)
  11. LYRICA [Suspect]
     Active Substance: PREGABALIN
     Dosage: 50 MG, 2X/DAY ONE IN THE MORNING AND ONE AT NIGHT
     Route: 048
  12. CALTRATE 600 MG PLUS D3 [Concomitant]
     Dosage: UNK UNK, 2X/DAY
     Route: 048
     Dates: start: 2014
  13. DONNATAL [Concomitant]
     Active Substance: ATROPINE SULFATE\HYOSCYAMINE SULFATE\PHENOBARBITAL\SCOPOLAMINE HYDROBROMIDE
     Dosage: UNK
     Dates: end: 20160615
  14. FIORICET [Concomitant]
     Active Substance: ACETAMINOPHEN\BUTALBITAL\CAFFEINE
     Indication: MIGRAINE
     Dosage: UNK, AS NEEDED (BUTALBITAL, ACETAMINOPHEN, AND CAFFEINE: 325 MG-50 MG-40 MG) (6:30 AM, 8:00 PM)
  15. TOPAMAX [Concomitant]
     Active Substance: TOPIRAMATE
     Indication: MIGRAINE
     Dosage: 75 MG, 1X/DAY AT NIGHT TIME (EVERY DAY AT 8:00 PM)
  16. URECHOLINE [Concomitant]
     Active Substance: BETHANECHOL CHLORIDE
     Dosage: 10 MG, 2X/DAY
     Route: 048
     Dates: start: 201501, end: 20160505
  17. CALTRATE 600 +D PLUS [Concomitant]
     Indication: OSTEOPENIA
     Dosage: 600 MG, 2X/DAY (EVERY DAY AT 7:30 AM, 8:00 PM)
  18. DOCQLACE [Concomitant]
     Active Substance: DOCUSATE SODIUM
     Indication: FAECES HARD
     Dosage: 100 MG, 2X/DAY (EVERY DAY AT 7:00 AM, 5:00 PM)
  19. FLORINEF ACETATE [Concomitant]
     Active Substance: FLUDROCORTISONE ACETATE
     Dosage: 0.1 MG, 1X/DAY
     Dates: start: 20150604
  20. CITALOPRAM [Concomitant]
     Active Substance: CITALOPRAM HYDROBROMIDE
     Indication: DEPRESSION
     Dosage: 25 MG, 1X/DAY (EVERY DAY AT 7:00 AM)
     Dates: start: 201506
  21. TRAZODONE [Concomitant]
     Active Substance: TRAZODONE HYDROCHLORIDE
     Indication: SLEEP DISORDER
     Dosage: 50 MG, 1X/DAY AT NIGHT (EVERY DAY AT 8:00 PM)
     Dates: start: 2013
  22. LYRICA [Suspect]
     Active Substance: PREGABALIN
     Dosage: 50 MG, 3X/DAY (EVERY DAY AT 6:30 AM, 5:00 PM, 8:00 PM)
     Route: 048
  23. METOPROLOL. [Concomitant]
     Active Substance: METOPROLOL
     Indication: TACHYCARDIA
     Dosage: 25 MG, 1X/DAY (EVERY DAY AT 7:00 AM)
     Route: 048
  24. VOLTAREN [Concomitant]
     Active Substance: DICLOFENAC SODIUM
     Indication: PAIN IN EXTREMITY
     Dosage: UNK, AS NEEDED

REACTIONS (3)
  - Sinusitis [Not Recovered/Not Resolved]
  - Peripheral swelling [Unknown]
  - Blindness [Unknown]

NARRATIVE: CASE EVENT DATE: 20160321
